FAERS Safety Report 4768316-7 (Version None)
Quarter: 2005Q3

REPORT INFORMATION
  Report Type: 
  Country: None (occurrence: None)
  Receive Date: 20050914
  Receipt Date: 20050906
  Transmission Date: 20060218
  Serious: Yes (Hospitalization, Other)
  Sender: FDA-Public Use
  Company Number: 2005PK01636

PATIENT
  Age: 18095 Day
  Sex: Female
  Weight: 62 kg

DRUGS (1)
  1. NOLVADEX [Suspect]
     Indication: BREAST CANCER FEMALE
     Route: 048
     Dates: start: 20021121

REACTIONS (3)
  - CERVICAL POLYP [None]
  - ENDOMETRIAL HYPERPLASIA [None]
  - UTERINE POLYP [None]
